FAERS Safety Report 4966888-0 (Version None)
Quarter: 2006Q2

REPORT INFORMATION
  Report Type: 
  Country: None (occurrence: None)
  Receive Date: 20060407
  Receipt Date: 20060329
  Transmission Date: 20061013
  Serious: Yes (Hospitalization, Disabling)
  Sender: FDA-Public Use
  Company Number: US-MERCK-0603USA04581

PATIENT
  Age: 62 Year
  Sex: Male
  Weight: 81 kg

DRUGS (9)
  1. VIOXX [Suspect]
     Indication: ARTHRALGIA
     Route: 048
     Dates: start: 20030611, end: 20040601
  2. ALTACE [Concomitant]
     Route: 065
     Dates: start: 19970901
  3. ATENOLOL [Concomitant]
     Route: 065
     Dates: start: 19970901
  4. FLOMAX (MORNIFLUMATE) [Concomitant]
     Route: 065
  5. LIPITOR [Concomitant]
     Route: 065
     Dates: start: 19970901
  6. PROSCAR [Concomitant]
     Route: 065
  7. CLARITIN [Concomitant]
     Route: 065
  8. ASPIRIN [Concomitant]
     Route: 065
     Dates: start: 19970901
  9. AVODART [Concomitant]
     Route: 065

REACTIONS (1)
  - MYOCARDIAL INFARCTION [None]
